FAERS Safety Report 14084391 (Version 2)
Quarter: 2017Q4

REPORT INFORMATION
  Report Type: Spontaneous
  Country: US (occurrence: US)
  Receive Date: 20171013
  Receipt Date: 20171206
  Transmission Date: 20180321
  Serious: No
  Sender: FDA-Public Use
  Company Number: US-TEVA-775751USA

PATIENT
  Age: 37 Year
  Sex: Female
  Weight: 80.36 kg

DRUGS (6)
  1. XOPENEX AND IPRATROPIUM BROMIDE [Concomitant]
  2. FLONASE [Concomitant]
     Active Substance: FLUTICASONE PROPIONATE
  3. CINQAIR [Suspect]
     Active Substance: RESLIZUMAB
     Indication: ASTHMA
     Dosage: 300 MG
     Route: 042
     Dates: start: 20170531
  4. ZYFLO [Concomitant]
     Active Substance: ZILEUTON
     Dosage: 1200  DAILY;
  5. ARNUITY ELLIPTA [Concomitant]
     Active Substance: FLUTICASONE FUROATE
  6. EPI [Concomitant]
     Active Substance: EPINEPHRINE

REACTIONS (1)
  - Vomiting [Recovered/Resolved]

NARRATIVE: CASE EVENT DATE: 20170531
